FAERS Safety Report 13504055 (Version 1)
Quarter: 2017Q2

REPORT INFORMATION
  Report Type: Spontaneous
  Country: US (occurrence: US)
  Receive Date: 20170502
  Receipt Date: 20170502
  Transmission Date: 20170830
  Serious: Yes (Other)
  Sender: FDA-Public Use
  Company Number: None

PATIENT
  Age: 14 Year
  Sex: Female
  Weight: 53.1 kg

DRUGS (3)
  1. VALACYCLOVIR TABLETS USP 1 GRAM [Suspect]
     Active Substance: VALACYCLOVIR HYDROCHLORIDE
     Indication: OPHTHALMIC HERPES SIMPLEX
     Dosage: ?          QUANTITY:1 TABLET(S);?
     Route: 048
     Dates: start: 20170410, end: 20170413
  2. AYCLOVAIR [Concomitant]
  3. ANTI-HISTAMINES [Concomitant]

REACTIONS (15)
  - Pruritus [None]
  - Loss of consciousness [None]
  - Sensation of foreign body [None]
  - Rash macular [None]
  - Diarrhoea [None]
  - Lip swelling [None]
  - Urticaria [None]
  - Scratch [None]
  - Skin discolouration [None]
  - Throat irritation [None]
  - Product quality issue [None]
  - Peripheral swelling [None]
  - Pyrexia [None]
  - Eye swelling [None]
  - Erythema [None]

NARRATIVE: CASE EVENT DATE: 20170413
